FAERS Safety Report 5930518-1 (Version None)
Quarter: 2008Q4

REPORT INFORMATION
  Report Type: 
  Country: None (occurrence: None)
  Receive Date: 20081026
  Receipt Date: 20081017
  Transmission Date: 20090506
  Serious: Yes (Hospitalization, Other)
  Sender: FDA-Public Use
  Company Number: PHHO2008FR03296

PATIENT
  Sex: Female
  Weight: 73 kg

DRUGS (6)
  1. ERL 080A ERL+TAB [Suspect]
     Indication: RENAL TRANSPLANT
     Dosage: 2160 MG / DAY
     Route: 048
     Dates: start: 20071130, end: 20080228
  2. ERL 080A ERL+TAB [Suspect]
     Dosage: 1080 UG / DAY
     Route: 048
     Dates: start: 20080229, end: 20080305
  3. ERL 080A ERL+TAB [Suspect]
     Dosage: 720 MG
     Route: 048
     Dates: start: 20080306, end: 20080309
  4. ERL 080A ERL+TAB [Suspect]
     Dosage: NO TREATMENT
     Dates: start: 20080310, end: 20080326
  5. ERL 080A ERL+TAB [Suspect]
     Dosage: 720 MG
     Route: 048
     Dates: start: 20080328
  6. CORTICOSTEROIDS [Concomitant]
     Indication: RENAL TRANSPLANT
     Dosage: 40 MG / DAY
     Route: 048

REACTIONS (7)
  - DIARRHOEA [None]
  - KIDNEY TRANSPLANT REJECTION [None]
  - MALABSORPTION [None]
  - OESOPHAGEAL ULCER [None]
  - PANCREAS INFECTION [None]
  - RENAL FAILURE [None]
  - RENAL TUBULAR DISORDER [None]
